FAERS Safety Report 10510041 (Version 1)
Quarter: 2014Q4

REPORT INFORMATION
  Report Type: Spontaneous
  Country: US (occurrence: None)
  Receive Date: 20141008
  Receipt Date: 20141008
  Transmission Date: 20150528
  Serious: Yes (Disabling)
  Sender: FDA-Public Use
  Company Number: 2564052

PATIENT
  Age: 71 Year
  Sex: Male

DRUGS (4)
  1. VANCOMYCIN HYDROCHLORIDE. [Suspect]
     Active Substance: VANCOMYCIN HYDROCHLORIDE
     Indication: PROPHYLAXIS
     Route: 031
  2. LIDOCAINE. [Suspect]
     Active Substance: LIDOCAINE
     Indication: CATARACT OPERATION
  3. VANCOMYCIN HYDROCHLORIDE. [Suspect]
     Active Substance: VANCOMYCIN HYDROCHLORIDE
     Indication: ENDOPHTHALMITIS
     Route: 031
  4. EPINEPHRINE. [Suspect]
     Active Substance: EPINEPHRINE
     Indication: CATARACT OPERATION

REACTIONS (9)
  - Anterior chamber cell [None]
  - Blindness [None]
  - Retinal vasculitis [None]
  - Vitritis [None]
  - Retinal haemorrhage [None]
  - Necrotising retinitis [None]
  - Iris neovascularisation [None]
  - Post procedural complication [None]
  - Retinal ischaemia [None]
